FAERS Safety Report 23796747 (Version 2)
Quarter: 2024Q2

REPORT INFORMATION
  Report Type: Spontaneous
  Country: US (occurrence: US)
  Receive Date: 20240430
  Receipt Date: 20240520
  Transmission Date: 20240716
  Serious: No
  Sender: FDA-Public Use
  Company Number: US-BIOGEN-2023BI01237096

PATIENT
  Sex: Male

DRUGS (4)
  1. SKYCLARYS [Suspect]
     Active Substance: OMAVELOXOLONE
     Indication: Friedreich^s ataxia
     Dosage: 150 MILLIGRAM, QD (THREE 50 MG CAPSULES ONCE DAILY)
     Route: 050
     Dates: start: 20230705
  2. SKYCLARYS [Suspect]
     Active Substance: OMAVELOXOLONE
     Dosage: 150 MILLIGRAM, QD (THREE 50 MG CAPSULES ONCE DAILY)
     Route: 050
     Dates: start: 20230705
  3. SKYCLARYS [Suspect]
     Active Substance: OMAVELOXOLONE
     Dosage: 150 MILLIGRAM, QD (THREE 50 MG CAPSULES ONCE DAILY)
     Route: 050
     Dates: start: 20230705
  4. SKYCLARYS [Suspect]
     Active Substance: OMAVELOXOLONE
     Dosage: 150 MILLIGRAM, QD (THREE 50 MG CAPSULES ONCE DAILY)
     Route: 050
     Dates: start: 20230705

REACTIONS (4)
  - Headache [Unknown]
  - Fatigue [Unknown]
  - Hepatic enzyme increased [Unknown]
  - Product dose omission in error [Unknown]

NARRATIVE: CASE EVENT DATE: 20230101
